FAERS Safety Report 5151301-3 (Version None)
Quarter: 2006Q4

REPORT INFORMATION
  Report Type: 
  Country: None (occurrence: None)
  Receive Date: 20061115
  Receipt Date: 20060925
  Transmission Date: 20070319
  Serious: Yes (Hospitalization)
  Sender: FDA-Public Use
  Company Number: US-GLAXOSMITHKLINE-A0621579A

PATIENT
  Age: 42 Year
  Sex: Male
  Weight: 90.9 kg

DRUGS (6)
  1. TOPOTECAN [Suspect]
     Dosage: 2.1MG CYCLIC
     Route: 042
     Dates: start: 20060911, end: 20060925
  2. ERLOTINIB [Suspect]
     Dosage: 150MG PER DAY
     Route: 048
     Dates: start: 20060912
  3. DURAGESIC-100 [Concomitant]
  4. DILAUDID [Concomitant]
  5. AVINZA [Concomitant]
     Dosage: 360MG PER DAY
  6. NIFEDIPINE [Concomitant]
     Dosage: 30MG PER DAY

REACTIONS (3)
  - HAEMATURIA [None]
  - PAIN [None]
  - STAPHYLOCOCCAL BACTERAEMIA [None]
